FAERS Safety Report 6536782-2 (Version None)
Quarter: 2010Q1

REPORT INFORMATION
  Report Type: 
  Country: None (occurrence: None)
  Receive Date: 20100113
  Receipt Date: 20091229
  Transmission Date: 20100710
  Serious: Yes (Other)
  Sender: FDA-Public Use
  Company Number: JP-PFIZER INC-2010004313

PATIENT
  Age: 45 Year
  Sex: Female

DRUGS (5)
  1. AZULFIDINE [Suspect]
     Indication: RHEUMATOID ARTHRITIS
     Dosage: UNK
     Route: 048
     Dates: start: 20091130
  2. AZULFIDINE [Suspect]
     Dosage: UNK
     Route: 048
     Dates: start: 20091221, end: 20100106
  3. CELECOX [Suspect]
     Dosage: UNK
     Route: 048
     Dates: start: 20091130
  4. LOXONIN [Concomitant]
     Indication: RHEUMATOID ARTHRITIS
     Dosage: UNK
  5. HYPEN [Concomitant]
     Dosage: UNK
     Route: 048
     Dates: start: 20091221

REACTIONS (3)
  - DRUG ERUPTION [None]
  - MUSCLE SPASMS [None]
  - PYREXIA [None]
